FAERS Safety Report 15095893 (Version 15)
Quarter: 2019Q1

REPORT INFORMATION
  Report Type: Spontaneous
  Country: GB (occurrence: GB)
  Receive Date: 20180702
  Receipt Date: 20190111
  Transmission Date: 20190417
  Serious: Yes (Life-Threatening, Hospitalization, Other)
  Sender: FDA-Public Use
  Company Number: PHHY2017GB204010

PATIENT
  Age: 29 Year
  Sex: Female

DRUGS (19)
  1. PREDNISOLONE. [Suspect]
     Active Substance: PREDNISOLONE
     Indication: ASTHMA
     Dosage: 30 MG, UNK (MISUSE)
     Route: 048
  2. HYDROCORTISON [Suspect]
     Active Substance: HYDROCORTISONE
     Indication: ASTHMA
     Dosage: 100 MG (MISUSE)
     Route: 042
  3. ALBUTEROL. [Suspect]
     Active Substance: ALBUTEROL
     Dosage: 15 MG, UNK, (NEBULISER: IN REPEATED DOSES)
     Route: 065
  4. ALBUTEROL. [Suspect]
     Active Substance: ALBUTEROL
     Dosage: 12.3 MG, UNK
     Route: 042
  5. SALBUTAMOL SULFATE [Suspect]
     Active Substance: ALBUTEROL SULFATE
     Indication: ASTHMA
     Dosage: 250 UG,UNK (MISUSE)
     Route: 040
  6. THEOPHYLLINE [Suspect]
     Active Substance: THEOPHYLLINE ANHYDROUS
     Indication: ASTHMA
     Dosage: UNK (MISUSE)
     Route: 065
  7. SEVOFLURANE. [Suspect]
     Active Substance: SEVOFLURANE
     Dosage: 8 %,UNK
     Route: 055
  8. MAGNESIUM [Suspect]
     Active Substance: MAGNESIUM
     Indication: ASTHMA
     Dosage: 2 G, UNK
     Route: 042
  9. KETAMINE [Suspect]
     Active Substance: KETAMINE
     Indication: ASTHMA
     Dosage: UNK (INCREASED TO 45 MICROG/KG/MIN)
     Route: 042
  10. ALBUTEROL. [Suspect]
     Active Substance: ALBUTEROL
     Indication: ASTHMA
     Dosage: UNK
     Route: 042
  11. ALBUTEROL. [Suspect]
     Active Substance: ALBUTEROL
     Dosage: 250 UG, UNK (2 BOLUSES)
     Route: 040
  12. MONTELUKAST SODIUM. [Suspect]
     Active Substance: MONTELUKAST SODIUM
     Indication: ASTHMA
     Dosage: UNK (MISUSE)
     Route: 048
  13. SEVOFLURANE. [Suspect]
     Active Substance: SEVOFLURANE
     Indication: ASTHMA
     Dosage: UNK
     Route: 055
  14. SEVOFLURANE. [Suspect]
     Active Substance: SEVOFLURANE
     Dosage: 8 %, UNK
     Route: 055
  15. EPINEPHRINE. [Suspect]
     Active Substance: EPINEPHRINE
     Indication: ASTHMA
     Dosage: 350 UG, UNK (DILUTED IN SMALL INCREMENTS) (MISUSE)
     Route: 065
  16. MAGNESIUM SULFATE. [Suspect]
     Active Substance: MAGNESIUM SULFATE
     Indication: ASTHMA
     Dosage: 2 G, UNK  (MISUSE)
     Route: 042
  17. SALBUTAMOL SULFATE [Suspect]
     Active Substance: ALBUTEROL SULFATE
     Dosage: 12.3 MG,UNK
     Route: 042
  18. IPRATROPIUM BROMIDE. [Suspect]
     Active Substance: IPRATROPIUM BROMIDE
     Indication: ASTHMA
     Dosage: 0.5 MG, UNK (NEBULISATION) (MISUSE)
     Route: 055
  19. SALBUTAMOL SULFATE [Suspect]
     Active Substance: ALBUTEROL SULFATE
     Dosage: 15 MG,UNK
     Route: 065

REACTIONS (20)
  - Drug ineffective [Unknown]
  - Acute respiratory failure [Recovered/Resolved]
  - Asthma [Recovered/Resolved]
  - Blood bicarbonate decreased [Recovering/Resolving]
  - Respiratory rate increased [Recovered/Resolved]
  - Cyanosis [Recovering/Resolving]
  - PCO2 increased [Recovering/Resolving]
  - Status asthmaticus [Recovered/Resolved]
  - PO2 decreased [Recovering/Resolving]
  - Blood pH decreased [Recovering/Resolving]
  - Airway peak pressure increased [Recovering/Resolving]
  - Blood lactic acid increased [Recovering/Resolving]
  - Hypercapnia [Recovering/Resolving]
  - Off label use [Unknown]
  - Bronchospasm [Recovered/Resolved]
  - Dyspnoea [Recovering/Resolving]
  - Lung hyperinflation [Recovered/Resolved]
  - Respiratory acidosis [Recovering/Resolving]
  - Oxygen saturation decreased [Recovered/Resolved]
  - Wheezing [Recovered/Resolved]
